FAERS Safety Report 23511640 (Version 1)
Quarter: 2024Q1

REPORT INFORMATION
  Report Type: Spontaneous
  Country: GB (occurrence: GB)
  Receive Date: 20240212
  Receipt Date: 20240212
  Transmission Date: 20240410
  Serious: Yes (Other)
  Sender: FDA-Public Use
  Company Number: GB-RDY-LIT/GBR/24/0002152

PATIENT
  Age: 6 Month
  Sex: Male

DRUGS (7)
  1. CETIRIZINE [Suspect]
     Active Substance: CETIRIZINE HYDROCHLORIDE
     Indication: Systemic mastocytosis
     Dosage: (EIGHTFOLD DOSAGE)
  2. MONTELUKAST [Suspect]
     Active Substance: MONTELUKAST SODIUM
     Indication: Systemic mastocytosis
  3. HYDROXYZINE [Suspect]
     Active Substance: HYDROXYZINE HYDROCHLORIDE
     Indication: Systemic mastocytosis
  4. CHLORPHENIRAMINE MALEATE [Suspect]
     Active Substance: CHLORPHENIRAMINE MALEATE
     Indication: Systemic mastocytosis
  5. KETOTIFEN [Suspect]
     Active Substance: KETOTIFEN
     Indication: Systemic mastocytosis
  6. CROMOLYN SODIUM [Suspect]
     Active Substance: CROMOLYN SODIUM
     Indication: Systemic mastocytosis
  7. CIMETIDINE [Suspect]
     Active Substance: CIMETIDINE
     Indication: Systemic mastocytosis

REACTIONS (1)
  - Drug ineffective [Unknown]
